FAERS Safety Report 15767375 (Version 2)
Quarter: 2019Q1

REPORT INFORMATION
  Report Type: Report from Study
  Country: ES (occurrence: ES)
  Receive Date: 20181227
  Receipt Date: 20190124
  Transmission Date: 20190417
  Serious: Yes (Other)
  Sender: FDA-Public Use
  Company Number: PHHY2015ES095770

PATIENT
  Age: 1 Year
  Sex: Female

DRUGS (3)
  1. VOTUBIA [Suspect]
     Active Substance: EVEROLIMUS
     Indication: TUBEROUS SCLEROSIS COMPLEX
     Dosage: UNK
     Route: 065
     Dates: start: 20130203
  2. VOTUBIA [Suspect]
     Active Substance: EVEROLIMUS
     Dosage: 1.5 DF (2.5 MG), QD
     Route: 048
     Dates: start: 20140204, end: 20171025
  3. VOTUBIA [Suspect]
     Active Substance: EVEROLIMUS
     Dosage: UNK
     Route: 065

REACTIONS (4)
  - Epilepsy [Recovering/Resolving]
  - Hypercholesterolaemia [Recovering/Resolving]
  - Post procedural fever [Unknown]
  - Hypertriglyceridaemia [Recovering/Resolving]

NARRATIVE: CASE EVENT DATE: 20140515
